FAERS Safety Report 6730931-9 (Version None)
Quarter: 2010Q2

REPORT INFORMATION
  Report Type: 
  Country: None (occurrence: None)
  Receive Date: 20100518
  Receipt Date: 20100512
  Transmission Date: 20101027
  Serious: Yes (Other)
  Sender: FDA-Public Use
  Company Number: GB-WYE-G05861010

PATIENT
  Age: 31 Year
  Sex: Male

DRUGS (4)
  1. LANSOPRAZOLE [Suspect]
     Indication: REFLUX OESOPHAGITIS
     Dosage: UNKNOWN
     Route: 048
     Dates: start: 20031001
  2. OXAZEPAM [Concomitant]
     Indication: ANXIETY
     Dosage: UNKNOWN
     Dates: start: 20010627
  3. CLOZARIL [Concomitant]
     Indication: SCHIZOPHRENIA
     Dosage: UNKNOWN
     Route: 048
     Dates: start: 19971110
  4. CLOZARIL [Concomitant]
     Dosage: UNKNOWN
     Route: 048
     Dates: start: 20070129

REACTIONS (1)
  - RASH [None]
